FAERS Safety Report 20578565 (Version 1)
Quarter: 2022Q1

REPORT INFORMATION
  Report Type: Spontaneous
  Country: US (occurrence: None)
  Receive Date: 20220310
  Receipt Date: 20220310
  Transmission Date: 20220423
  Serious: Yes (Other)
  Sender: FDA-Public Use
  Company Number: None

PATIENT
  Age: 33 Year
  Sex: Male

DRUGS (1)
  1. TOFACITINIB [Suspect]
     Active Substance: TOFACITINIB
     Dates: start: 20210707

REACTIONS (3)
  - Urticaria [None]
  - Lip swelling [None]
  - Mouth swelling [None]

NARRATIVE: CASE EVENT DATE: 20210708
